FAERS Safety Report 4955819-5 (Version None)
Quarter: 2006Q1

REPORT INFORMATION
  Report Type: 
  Country: None (occurrence: None)
  Receive Date: 20060328
  Receipt Date: 20060317
  Transmission Date: 20060701
  Serious: Yes (Other)
  Sender: FDA-Public Use
  Company Number: JP-JNJFOC-20060305468

PATIENT
  Sex: Female
  Weight: 44 kg

DRUGS (20)
  1. RISPERDAL [Suspect]
     Route: 048
  2. RISPERDAL [Suspect]
     Route: 048
  3. RISPERDAL [Suspect]
     Route: 048
  4. RISPERDAL [Suspect]
     Route: 048
  5. RISPERDAL [Suspect]
     Route: 048
  6. RISPERDAL [Suspect]
     Route: 048
  7. AMOXAPINE [Concomitant]
     Route: 048
  8. AMOXAPINE [Concomitant]
     Route: 048
  9. AMOXAPINE [Concomitant]
     Route: 048
  10. FLUNITRAZEPAM [Concomitant]
     Route: 048
  11. NITRAZEPAM [Concomitant]
     Route: 048
  12. NITRAZEPAM [Concomitant]
     Route: 048
  13. NITRAZEPAM [Concomitant]
     Route: 048
  14. NITRAZEPAM [Concomitant]
     Route: 048
  15. NITRAZEPAM [Concomitant]
     Route: 048
  16. CHLORPROMAZINE-PROMETHAZINE COMBINED DRUG [Concomitant]
     Route: 048
  17. QUAZEPAM [Concomitant]
     Route: 048
  18. QUAZEPAM [Concomitant]
     Route: 048
  19. ETIZOLAM [Concomitant]
     Route: 048
  20. ETIZOLAM [Concomitant]
     Route: 048

REACTIONS (6)
  - ANAEMIA [None]
  - BLOOD TRIGLYCERIDES INCREASED [None]
  - DYSGRAPHIA [None]
  - EARLY MORNING AWAKENING [None]
  - MIDDLE INSOMNIA [None]
  - PAIN [None]
